FAERS Safety Report 10268808 (Version 2)
Quarter: 2014Q3

REPORT INFORMATION
  Report Type: Spontaneous
  Country: RO (occurrence: RO)
  Receive Date: 20140630
  Receipt Date: 20140925
  Transmission Date: 20150326
  Serious: Yes (Hospitalization)
  Sender: FDA-Public Use
  Company Number: PHHY2014RO077290

PATIENT
  Age: 23 Year
  Sex: Female

DRUGS (1)
  1. OXACILLIN [Suspect]
     Active Substance: OXACILLIN SODIUM
     Indication: TOOTH ABSCESS

REACTIONS (17)
  - Dysstasia [Recovering/Resolving]
  - Dizziness [Recovering/Resolving]
  - Nausea [Recovering/Resolving]
  - Anterograde amnesia [Recovering/Resolving]
  - Chills [Recovering/Resolving]
  - Swelling face [Recovering/Resolving]
  - Gait disturbance [Recovering/Resolving]
  - Toothache [Recovering/Resolving]
  - Amnesia [Recovering/Resolving]
  - Malaise [Recovering/Resolving]
  - Cyanosis [Recovering/Resolving]
  - Muscular weakness [Recovering/Resolving]
  - Pulse absent [Recovering/Resolving]
  - Balance disorder [Recovering/Resolving]
  - Anaphylactic shock [Recovering/Resolving]
  - Headache [Recovering/Resolving]
  - Blood pressure decreased [Recovering/Resolving]
